FAERS Safety Report 9577538 (Version 1)
Quarter: 2013Q4

REPORT INFORMATION
  Report Type: Spontaneous
  Country: US (occurrence: US)
  Receive Date: 20131001
  Receipt Date: 20131001
  Transmission Date: 20140711
  Serious: No
  Sender: FDA-Public Use
  Company Number: US-AMGEN-USASP2013008327

PATIENT
  Age: 52 Year
  Sex: Female
  Weight: 58.05 kg

DRUGS (5)
  1. ENBREL [Suspect]
     Indication: PRODUCT USED FOR UNKNOWN INDICATION
     Dosage: 50 MG, QWK
     Route: 058
  2. ZOMIG [Concomitant]
     Dosage: 5 MG, UNK
  3. VENLAFAXINE [Concomitant]
     Dosage: 150 MG, UNK, ER
  4. MULTI [Concomitant]
     Dosage: UNK
  5. VITAMIN B3 [Concomitant]
     Dosage: 5000 UNIT UNK, UNK

REACTIONS (2)
  - Pyrexia [Unknown]
  - Pain [Unknown]
